FAERS Safety Report 10188444 (Version 1)
Quarter: 2014Q2

REPORT INFORMATION
  Report Type: Spontaneous
  Country: BE (occurrence: BE)
  Receive Date: 20140522
  Receipt Date: 20140522
  Transmission Date: 20141212
  Serious: Yes (Hospitalization)
  Sender: FDA-Public Use
  Company Number: BE-009507513-1405BEL009097

PATIENT
  Age: 52 Year
  Sex: Female

DRUGS (4)
  1. NASONEX [Suspect]
     Indication: SINUSITIS
     Dosage: 2 SPRAYS/NOSTRIL 2 TIMES A DAY
     Route: 045
     Dates: start: 20121003, end: 20121117
  2. NASONEX [Suspect]
     Dosage: 2 SPRAYS/NOSTRIL 2 TIMES A DAY
     Route: 045
     Dates: start: 20130701, end: 20130705
  3. NASONEX [Suspect]
     Dosage: 2 SPRAYS/NOSTRIL 2 TIMES A DAY
     Route: 045
     Dates: start: 20131230, end: 20140228
  4. ATACAND [Concomitant]
     Dosage: UNK
     Route: 048

REACTIONS (4)
  - Palpitations [Recovered/Resolved]
  - Heart rate increased [Recovered/Resolved]
  - Vertigo [Recovered/Resolved]
  - Malaise [Recovered/Resolved]
